FAERS Safety Report 7142077-9 (Version None)
Quarter: 2010Q4

REPORT INFORMATION
  Report Type: 
  Country: None (occurrence: None)
  Receive Date: 20101207
  Receipt Date: 20101201
  Transmission Date: 20110411
  Serious: Yes (Life-Threatening, Hospitalization)
  Sender: FDA-Public Use
  Company Number: B0687801A

PATIENT
  Age: 77 Year
  Sex: Female

DRUGS (9)
  1. ZOFRAN [Suspect]
     Indication: NAUSEA
     Dosage: 4MG PER DAY
     Route: 040
     Dates: start: 20100928, end: 20101102
  2. LISINOPRIL [Suspect]
     Indication: PRODUCT USED FOR UNKNOWN INDICATION
     Dosage: 5MG PER DAY
     Route: 048
     Dates: start: 20100729, end: 20101102
  3. TAVANIC [Suspect]
     Indication: OSTEOMYELITIS
     Dosage: 500MG TWICE PER DAY
     Route: 048
     Dates: start: 20101101, end: 20101102
  4. CLEXANE [Concomitant]
     Indication: PROPHYLAXIS
     Dosage: 40MG PER DAY
     Route: 058
     Dates: start: 20100929
  5. FLOXAPEN [Concomitant]
     Indication: OSTEOMYELITIS
     Dosage: 2G FOUR TIMES PER DAY
     Route: 042
     Dates: start: 20101014, end: 20101101
  6. RIMACTANE [Concomitant]
     Indication: PRODUCT USED FOR UNKNOWN INDICATION
     Dosage: 450MG TWICE PER DAY
     Route: 048
     Dates: start: 20101028
  7. PREDNISONE [Concomitant]
     Indication: AUTOIMMUNE HEPATITIS
     Dosage: 5MG PER DAY
     Route: 048
     Dates: start: 20020101
  8. MODURETIC 5-50 [Concomitant]
     Indication: LOCALISED OEDEMA
     Route: 048
  9. LASIX [Concomitant]
     Indication: LOCALISED OEDEMA
     Dosage: 20MG PER DAY
     Route: 048

REACTIONS (9)
  - ABDOMINAL PAIN UPPER [None]
  - ANGIOEDEMA [None]
  - DYSPHAGIA [None]
  - DYSPNOEA [None]
  - LOCALISED OEDEMA [None]
  - NAUSEA [None]
  - SALIVARY HYPERSECRETION [None]
  - TONGUE OEDEMA [None]
  - TYPE I HYPERSENSITIVITY [None]
